FAERS Safety Report 4604243-3 (Version None)
Quarter: 2005Q1

REPORT INFORMATION
  Report Type: 
  Country: None (occurrence: None)
  Receive Date: 20050308
  Receipt Date: 20050308
  Transmission Date: 20050727
  Serious: Yes (Hospitalization)
  Sender: FDA-Public Use
  Company Number: None

PATIENT
  Age: 78 Year
  Sex: Male
  Weight: 63.1 kg

DRUGS (13)
  1. BEXTRA [Suspect]
     Indication: ARTHRITIS
     Dates: start: 20041018, end: 20041022
  2. ZITHROMAX [Suspect]
     Indication: BRONCHITIS
     Dosage: REC'D FROM PMD
     Dates: start: 20041018, end: 20041022
  3. ATENOLOL [Concomitant]
  4. ASPIRIN [Concomitant]
  5. PLAVIX [Concomitant]
  6. NEXIUM [Concomitant]
  7. PRAVACHOL [Concomitant]
  8. TIMOPTIC [Concomitant]
  9. TRUSOPT [Concomitant]
  10. TRIMOX [Concomitant]
  11. MULTI-VITAMIN [Concomitant]
  12. FLAXSEED OIL [Concomitant]
  13. TYLENOL W/ CODEINE NO. 3 [Concomitant]

REACTIONS (5)
  - BLOOD CREATININE INCREASED [None]
  - DECREASED APPETITE [None]
  - DYSPNOEA [None]
  - HAEMODIALYSIS [None]
  - NEPHRITIS INTERSTITIAL [None]
